FAERS Safety Report 19048545 (Version 1)
Quarter: 2021Q1

REPORT INFORMATION
  Report Type: Spontaneous
  Country: GT (occurrence: GT)
  Receive Date: 20210323
  Receipt Date: 20210323
  Transmission Date: 20210420
  Serious: Yes (Death, Hospitalization, Other)
  Sender: FDA-Public Use
  Company Number: GT-SA-2021SA098610

PATIENT
  Sex: Female

DRUGS (1)
  1. LANTUS SOLOSTAR [Suspect]
     Active Substance: INSULIN GLARGINE
     Indication: DIABETES MELLITUS
     Dosage: UNK
     Route: 058

REACTIONS (3)
  - Multiple organ dysfunction syndrome [Fatal]
  - Disseminated intravascular coagulation [Fatal]
  - Malaise [Unknown]

NARRATIVE: CASE EVENT DATE: 201402
